FAERS Safety Report 16210386 (Version 1)
Quarter: 2019Q2

REPORT INFORMATION
  Report Type: Spontaneous
  Country: US (occurrence: US)
  Receive Date: 20190418
  Receipt Date: 20190418
  Transmission Date: 20190711
  Serious: No
  Sender: FDA-Public Use
  Company Number: US-ASTRAZENECA-2019SE46340

PATIENT
  Age: 18021 Day
  Sex: Male
  Weight: 104.3 kg

DRUGS (5)
  1. GLIMEPIRIDE. [Concomitant]
     Active Substance: GLIMEPIRIDE
     Indication: TYPE 2 DIABETES MELLITUS
     Route: 048
  2. BYDUREON BCISE [Suspect]
     Active Substance: EXENATIDE
     Indication: TYPE 2 DIABETES MELLITUS
     Route: 058
     Dates: start: 201810, end: 20190309
  3. ATORVASTATIN [Concomitant]
     Active Substance: ATORVASTATIN
     Indication: BLOOD CHOLESTEROL
     Route: 048
     Dates: start: 201102
  4. METFORMIN [Concomitant]
     Active Substance: METFORMIN HYDROCHLORIDE
     Indication: TYPE 2 DIABETES MELLITUS
     Dosage: 1000 TWO TIMES A DAY
     Route: 048
     Dates: start: 2013
  5. TEKTURNA [Concomitant]
     Active Substance: ALISKIREN HEMIFUMARATE
     Indication: BLOOD PRESSURE MEASUREMENT
     Route: 048
     Dates: start: 2011

REACTIONS (9)
  - Back pain [Unknown]
  - Tremor [Unknown]
  - Vomiting [Unknown]
  - Blood glucose decreased [Unknown]
  - Abdominal pain [Unknown]
  - Renal pain [Unknown]
  - Gastrooesophageal reflux disease [Unknown]
  - Diarrhoea [Unknown]
  - Abdominal distension [Unknown]

NARRATIVE: CASE EVENT DATE: 20181212
